FAERS Safety Report 7658925-X (Version None)
Quarter: 2011Q3

REPORT INFORMATION
  Report Type: 
  Country: None (occurrence: None)
  Receive Date: 20110805
  Receipt Date: 20110729
  Transmission Date: 20111222
  Serious: Yes (Death, Life-Threatening, Hospitalization)
  Sender: FDA-Public Use
  Company Number: US-AMGEN-USACT2011038789

PATIENT
  Age: 18 Year
  Sex: Female

DRUGS (2)
  1. ETANERCEPT [Suspect]
     Indication: GRAFT VERSUS HOST DISEASE
     Dosage: UNK
     Dates: start: 20110516, end: 20110718
  2. TACROLIMUS [Concomitant]

REACTIONS (2)
  - ACUTE GRAFT VERSUS HOST DISEASE [None]
  - HYPOXIA [None]
